FAERS Safety Report 13382290 (Version 1)
Quarter: 2017Q1

REPORT INFORMATION
  Report Type: Spontaneous
  Country: FR (occurrence: FR)
  Receive Date: 20170329
  Receipt Date: 20170329
  Transmission Date: 20170429
  Serious: Yes (Other)
  Sender: FDA-Public Use
  Company Number: FR-PFIZER INC-2017077722

PATIENT
  Age: 70 Year
  Sex: Female

DRUGS (2)
  1. NEURONTIN [Suspect]
     Active Substance: GABAPENTIN
     Indication: PERIPHERAL SENSORY NEUROPATHY
     Dosage: 500 MG DAILY (5X 100 MG)
  2. NEURONTIN [Suspect]
     Active Substance: GABAPENTIN
     Dosage: 100 MG, 4X/DAY

REACTIONS (15)
  - Hypoaesthesia [Unknown]
  - Tremor [Unknown]
  - Drug ineffective for unapproved indication [Unknown]
  - Vertigo [Unknown]
  - Gait disturbance [Unknown]
  - Fatigue [Unknown]
  - Blood lactate dehydrogenase increased [Unknown]
  - Protein total decreased [Unknown]
  - Hypogammaglobulinaemia [Unknown]
  - Alopecia [Unknown]
  - Hypertension [Unknown]
  - Condition aggravated [Unknown]
  - Monoclonal gammopathy [Unknown]
  - Vitamin B12 increased [Unknown]
  - Blood albumin decreased [Unknown]
